FAERS Safety Report 4364060-9 (Version None)
Quarter: 2004Q2

REPORT INFORMATION
  Report Type: 
  Country: None (occurrence: None)
  Receive Date: 20040521
  Receipt Date: 20040521
  Transmission Date: 20050107
  Serious: Yes (Life-Threatening, Hospitalization)
  Sender: FDA-Public Use
  Company Number: None

PATIENT
  Age: 78 Year
  Sex: Male

DRUGS (14)
  1. WARFARIN SODIUM [Suspect]
     Indication: AORTIC VALVE REPLACEMENT
     Dosage: 2 MG ONCE DAILY ORAL
     Route: 048
     Dates: start: 20020701, end: 20030619
  2. WARFARIN SODIUM [Suspect]
     Indication: CEREBROVASCULAR DISORDER
     Dosage: 2 MG ONCE DAILY ORAL
     Route: 048
     Dates: start: 20020701, end: 20030619
  3. WARARIN [Concomitant]
  4. METOLAZONE [Concomitant]
  5. BUDESONIDE [Concomitant]
  6. CARVEDILOL [Concomitant]
  7. ALLOPURINOL QUININE [Concomitant]
  8. FOLIC ACID [Concomitant]
  9. MULTI-VITAMIN [Concomitant]
  10. POTASSIUM CHLORIDE [Concomitant]
  11. PANTOPRAZOLE [Concomitant]
  12. QUININE [Concomitant]
  13. SPIRONOLACTONE [Concomitant]
  14. ALLOPURINOL [Concomitant]

REACTIONS (3)
  - COAGULOPATHY [None]
  - HYPOPROTHROMBINAEMIA [None]
  - UPPER GASTROINTESTINAL HAEMORRHAGE [None]
